FAERS Safety Report 16844623 (Version 2)
Quarter: 2020Q4

REPORT INFORMATION
  Report Type: Report from Study
  Country: BR (occurrence: BR)
  Receive Date: 20190924
  Receipt Date: 20201022
  Transmission Date: 20210113
  Serious: Yes (Death, Hospitalization, Other)
  Sender: FDA-Public Use
  Company Number: BR-BAYER-2019-168671

PATIENT
  Age: 72 Year
  Sex: Male

DRUGS (3)
  1. DIOVAN [Concomitant]
     Active Substance: VALSARTAN
     Indication: HYPERTENSION
     Dosage: 80 MG, BID
     Route: 048
  2. OMEPRAZOLE. [Concomitant]
     Active Substance: OMEPRAZOLE
     Dosage: 20 MG, QD
  3. NEXAVAR [Suspect]
     Active Substance: SORAFENIB
     Indication: HEPATIC CANCER
     Dosage: 400 MG, QD
     Route: 048
     Dates: start: 20180307

REACTIONS (11)
  - Haemorrhagic stroke [None]
  - Hyperkeratosis [Not Recovered/Not Resolved]
  - Hepatic cancer [Fatal]
  - Food refusal [None]
  - Gait inability [None]
  - Asthenia [Not Recovered/Not Resolved]
  - Decreased appetite [Not Recovered/Not Resolved]
  - Choking [Not Recovered/Not Resolved]
  - Off label use [None]
  - Abdominal discomfort [Not Recovered/Not Resolved]
  - Blood pressure increased [None]

NARRATIVE: CASE EVENT DATE: 201911
